FAERS Safety Report 4837472-4 (Version None)
Quarter: 2005Q4

REPORT INFORMATION
  Report Type: 
  Country: None (occurrence: None)
  Receive Date: 20051128
  Receipt Date: 20051030
  Transmission Date: 20060501
  Serious: Yes (Death, Life-Threatening)
  Sender: FDA-Public Use
  Company Number: IL-NOVOPROD-248199

PATIENT
  Age: 31 Year
  Sex: Male

DRUGS (8)
  1. NOVOSEVEN [Suspect]
     Indication: TRAUMATIC HAEMORRHAGE
     Dosage: 8.4 MG, SINGLE
     Route: 042
     Dates: start: 20051022, end: 20051001
  2. RED BLOOD CELLS [Concomitant]
     Dosage: 57 UNK, UNK
  3. FRESH FROZEN PLASMA [Concomitant]
     Dosage: 51 UNK, UNK
  4. KRYOPRAEZIPITAT DER BLUTFORMEL [Concomitant]
     Dosage: 15 UNK, UNK
  5. PLATELETS [Concomitant]
  6. MORPHINE [Concomitant]
     Dosage: 60 MG, UNK
     Route: 042
     Dates: start: 20051022, end: 20051025
  7. FENTANYL [Concomitant]
     Dosage: 20 MG, UNK
     Route: 042
     Dates: start: 20051022, end: 20051026
  8. VECURONIUM BROMIDE [Concomitant]
     Dosage: 4 MG, UNK
     Route: 042
     Dates: start: 20051022, end: 20051026

REACTIONS (2)
  - MULTI-ORGAN FAILURE [None]
  - SEPSIS [None]
